FAERS Safety Report 7371617-X (Version None)
Quarter: 2011Q1

REPORT INFORMATION
  Report Type: 
  Country: None (occurrence: None)
  Receive Date: 20110324
  Receipt Date: 20101206
  Transmission Date: 20110831
  Serious: No
  Sender: FDA-Public Use
  Company Number: US-MYLANLABS-2010S1019666

PATIENT
  Age: 69 Year
  Sex: Male
  Weight: 86.18 kg

DRUGS (3)
  1. K-DUR [Concomitant]
     Dates: start: 19930101
  2. TERAZOSIN HYDROCHLORIDE [Suspect]
     Indication: HYPERTENSION
     Route: 048
     Dates: start: 20090101, end: 20100101
  3. AVAPRO [Concomitant]
     Dates: start: 20090101

REACTIONS (3)
  - GASTRITIS [None]
  - DYSPEPSIA [None]
  - GASTROOESOPHAGEAL REFLUX DISEASE [None]
